FAERS Safety Report 19719145 (Version 1)
Quarter: 2021Q3

REPORT INFORMATION
  Report Type: Spontaneous
  Country: DE (occurrence: DE)
  Receive Date: 20210818
  Receipt Date: 20210818
  Transmission Date: 20211014
  Serious: Yes (Hospitalization)
  Sender: FDA-Public Use
  Company Number: DE-ANIPHARMA-2021-DE-000185

PATIENT
  Age: 84 Year
  Sex: Female
  Weight: 80 kg

DRUGS (6)
  1. FUROBETA [Suspect]
     Active Substance: FUROSEMIDE
     Dosage: 20 MG DAILY
     Route: 048
  2. BISOBETA COMP [Suspect]
     Active Substance: BISOPROLOL FUMARATE\HYDROCHLOROTHIAZIDE
     Dosage: 5/12 MG DAILY
     Route: 048
  3. ALENDRONAT ACIS [Concomitant]
     Dosage: 70 MG UNK
     Route: 048
  4. ATACAND [Suspect]
     Active Substance: CANDESARTAN CILEXETIL
     Indication: PRODUCT USED FOR UNKNOWN INDICATION
     Dosage: 8 MG DAILY
     Route: 048
  5. MARCUMAR [Suspect]
     Active Substance: PHENPROCOUMON
     Dosage: 3 MG UNK
     Route: 048
  6. SPIRO COMP [Suspect]
     Active Substance: FUROSEMIDE\SPIRONOLACTONE
     Dosage: 20/100 MG DAILY
     Route: 048

REACTIONS (6)
  - Skin haemorrhage [Unknown]
  - Petechiae [Unknown]
  - Mucosal haemorrhage [Unknown]
  - Product prescribing error [Unknown]
  - Gingival bleeding [Unknown]
  - Product monitoring error [Unknown]

NARRATIVE: CASE EVENT DATE: 20200718
